FAERS Safety Report 19024995 (Version 1)
Quarter: 2021Q1

REPORT INFORMATION
  Report Type: Other
  Country: SI (occurrence: SI)
  Receive Date: 20210318
  Receipt Date: 20210318
  Transmission Date: 20210420
  Serious: Yes (Other)
  Sender: FDA-Public Use
  Company Number: SI-ROCHE-2788061

PATIENT

DRUGS (4)
  1. OXALIPLATIN. [Suspect]
     Active Substance: OXALIPLATIN
     Indication: RECTAL CANCER
     Route: 042
  2. 5?FLUOROURACIL [Suspect]
     Active Substance: FLUOROURACIL
     Indication: RECTAL CANCER
     Route: 040
  3. CAPECITABINE. [Suspect]
     Active Substance: CAPECITABINE
     Indication: RECTAL CANCER
     Route: 065
  4. LEUCOVORIN. [Suspect]
     Active Substance: LEUCOVORIN
     Indication: RECTAL CANCER
     Route: 042

REACTIONS (18)
  - Ileus [Unknown]
  - Nausea [Unknown]
  - Vomiting [Unknown]
  - Stoma site infection [Unknown]
  - Embolism [Unknown]
  - Neutropenia [Unknown]
  - Hepatotoxicity [Unknown]
  - Paraesthesia [Unknown]
  - Anaemia [Unknown]
  - Anal fistula [Unknown]
  - Acute kidney injury [Unknown]
  - Palmar-plantar erythrodysaesthesia syndrome [Unknown]
  - Infection [Unknown]
  - Perineal infection [Unknown]
  - Enterocolitis [Unknown]
  - Chest pain [Unknown]
  - Thrombocytopenia [Unknown]
  - Diarrhoea [Unknown]
